FAERS Safety Report 15787450 (Version 2)
Quarter: 2019Q1

REPORT INFORMATION
  Report Type: Spontaneous
  Country: US (occurrence: US)
  Receive Date: 20190103
  Receipt Date: 20190114
  Transmission Date: 20190417
  Serious: Yes (Life-Threatening, Hospitalization, Other)
  Sender: FDA-Public Use
  Company Number: US-PFIZER INC-2018534293

PATIENT
  Age: 76 Year
  Sex: Female

DRUGS (1)
  1. THROMBIN [Suspect]
     Active Substance: THROMBIN
     Indication: HAEMOSTASIS
     Dosage: UNK
     Route: 061

REACTIONS (5)
  - Coagulopathy [Recovered/Resolved]
  - Shock haemorrhagic [Unknown]
  - Disseminated intravascular coagulation [Recovered/Resolved]
  - Post procedural haemorrhage [Unknown]
  - Immune-mediated adverse reaction [Recovered/Resolved]
